FAERS Safety Report 4783684-8 (Version None)
Quarter: 2005Q3

REPORT INFORMATION
  Report Type: 
  Country: None (occurrence: None)
  Receive Date: 20050928
  Receipt Date: 22000912
  Transmission Date: 20060218
  Serious: Yes (Hospitalization)
  Sender: FDA-Public Use
  Company Number: 2005P1000426

PATIENT
  Age: 71 Year
  Sex: Female
  Weight: 78 kg

DRUGS (7)
  1. RETEVASE [Suspect]
     Indication: ACUTE MYOCARDIAL INFARCTION
     Dosage: IV
     Route: 042
  2. ABCIXIMAB (ABCIXIMAB) [Suspect]
     Indication: ACUTE MYOCARDIAL INFARCTION
     Dosage: IV
     Route: 042
     Dates: start: 20050517
  3. ASPIRIN [Concomitant]
  4. METFORMIN [Concomitant]
  5. GLIBENCLAMIDE [Concomitant]
  6. METOPROLOL [Concomitant]
  7. FLUVASTATIN [Concomitant]

REACTIONS (1)
  - CORONARY ARTERY DISEASE [None]
